FAERS Safety Report 25401683 (Version 2)
Quarter: 2025Q4

REPORT INFORMATION
  Report Type: Report from Study
  Country: US (occurrence: US)
  Receive Date: 20250605
  Receipt Date: 20251118
  Transmission Date: 20260118
  Serious: Yes (Other)
  Sender: ABBVIE
  Company Number: US-ABBVIE-6309750

PATIENT
  Sex: Male

DRUGS (1)
  1. SKYRIZI [Suspect]
     Active Substance: RISANKIZUMAB-RZAA
     Indication: Psoriasis
     Route: 058
     Dates: start: 20240531

REACTIONS (4)
  - Spinal operation [Recovered/Resolved with Sequelae]
  - Musculoskeletal discomfort [Recovering/Resolving]
  - Psoriasis [Recovering/Resolving]
  - Diabetes mellitus [Recovering/Resolving]
